FAERS Safety Report 15576440 (Version 1)
Quarter: 2018Q4

REPORT INFORMATION
  Report Type: Spontaneous
  Country: US (occurrence: US)
  Receive Date: 20181101
  Receipt Date: 20181101
  Transmission Date: 20190205
  Serious: No
  Sender: FDA-Public Use
  Company Number: US-SUNOVION-2018SUN004156

PATIENT
  Sex: Female

DRUGS (3)
  1. LITHIUM CARBONATE. [Suspect]
     Active Substance: LITHIUM CARBONATE
     Dosage: UNK
     Route: 065
  2. LATUDA [Suspect]
     Active Substance: LURASIDONE HYDROCHLORIDE
     Dosage: 3X40 MG/DAILY
     Route: 048
     Dates: start: 201606, end: 2016
  3. LATUDA [Suspect]
     Active Substance: LURASIDONE HYDROCHLORIDE
     Dosage: 120 MG, QD
     Route: 048
     Dates: start: 2016, end: 2016

REACTIONS (4)
  - Feeling abnormal [Unknown]
  - Weight increased [Unknown]
  - Abnormal behaviour [Unknown]
  - Screaming [Unknown]

NARRATIVE: CASE EVENT DATE: 2016
